FAERS Safety Report 11639742 (Version 2)
Quarter: 2015Q4

REPORT INFORMATION
  Report Type: Report from Study
  Country: BR (occurrence: BR)
  Receive Date: 20151019
  Receipt Date: 20151030
  Transmission Date: 20160304
  Serious: Yes (Death, Hospitalization, Other)
  Sender: FDA-Public Use
  Company Number: BR-ABBVIE-15K-020-1483240-00

PATIENT
  Sex: Female

DRUGS (1)
  1. HUMIRA [Suspect]
     Active Substance: ADALIMUMAB
     Indication: RHEUMATOID ARTHRITIS
     Route: 058

REACTIONS (7)
  - Nosocomial infection [Fatal]
  - Decubitus ulcer [Unknown]
  - Gastrointestinal disorder [Unknown]
  - Anaemia [Recovered/Resolved]
  - Wound [Unknown]
  - Feeding disorder [Unknown]
  - Intestinal operation [Fatal]
